FAERS Safety Report 12272033 (Version 1)
Quarter: 2016Q2

REPORT INFORMATION
  Report Type: Spontaneous
  Country: US (occurrence: US)
  Receive Date: 20160415
  Receipt Date: 20160415
  Transmission Date: 20160815
  Serious: Yes (Other)
  Sender: FDA-Public Use
  Company Number: US-MDT-ADR-2015-02366

PATIENT
  Age: 19 Year
  Sex: Female

DRUGS (1)
  1. LIORESAL [Suspect]
     Active Substance: BACLOFEN
     Dosage: 7.5MCG/DAY
     Route: 037

REACTIONS (8)
  - Dizziness [Unknown]
  - Overdose [Unknown]
  - Hypotonia [Unknown]
  - Pupillary reflex impaired [Unknown]
  - Movement disorder [Unknown]
  - Somnolence [Unknown]
  - Muscle tightness [Unknown]
  - Lethargy [Unknown]

NARRATIVE: CASE EVENT DATE: 20151027
